FAERS Safety Report 10502380 (Version 2)
Quarter: 2014Q4

REPORT INFORMATION
  Report Type: Spontaneous
  Country: US (occurrence: None)
  Receive Date: 20141003
  Receipt Date: 20141008
  Transmission Date: 20150528
  Serious: Yes (Hospitalization)
  Sender: FDA-Public Use
  Company Number: CIO14067139

PATIENT
  Sex: Female

DRUGS (1)
  1. DAYQUIL COLD AND FLU [Suspect]
     Active Substance: ACETAMINOPHEN\DEXTROMETHORPHAN HYDROBROMIDE\PHENYLEPHRINE HYDROCHLORIDE
     Route: 048

REACTIONS (2)
  - Bronchopneumonia [None]
  - Condition aggravated [None]
